FAERS Safety Report 13156880 (Version 1)
Quarter: 2017Q1

REPORT INFORMATION
  Report Type: Spontaneous
  Country: US (occurrence: US)
  Receive Date: 20170127
  Receipt Date: 20170127
  Transmission Date: 20170428
  Serious: No
  Sender: FDA-Public Use
  Company Number: US-ASTRAZENECA-2017SE08270

PATIENT
  Age: 695 Month
  Sex: Female
  Weight: 104.3 kg

DRUGS (3)
  1. BYDUREON [Suspect]
     Active Substance: EXENATIDE
     Indication: TYPE 2 DIABETES MELLITUS
     Route: 058
     Dates: start: 201612, end: 20170116
  2. NOVANE [Concomitant]
     Indication: SCHIZOAFFECTIVE DISORDER
     Route: 048
  3. OXYGEN. [Concomitant]
     Active Substance: OXYGEN
     Indication: OXYGEN CONSUMPTION DECREASED
     Route: 055

REACTIONS (10)
  - Hypoaesthesia [Unknown]
  - Hypotension [Unknown]
  - Tension headache [Recovering/Resolving]
  - Neck pain [Unknown]
  - Eye pain [Unknown]
  - Cerebral disorder [Recovering/Resolving]
  - Facial pain [Unknown]
  - Hypertension [Unknown]
  - Blood glucose abnormal [Recovering/Resolving]
  - Eye disorder [Unknown]

NARRATIVE: CASE EVENT DATE: 201612
